APPROVED DRUG PRODUCT: DEXAMETHASONE SODIUM PHOSPHATE
Active Ingredient: DEXAMETHASONE SODIUM PHOSPHATE
Strength: EQ 4MG PHOSPHATE/ML
Dosage Form/Route: INJECTABLE;INJECTION
Application: A206781 | Product #001
Applicant: EUGIA PHARMA SPECIALITIES LTD
Approved: Dec 1, 2015 | RLD: No | RS: No | Type: DISCN